FAERS Safety Report 9121153 (Version 2)
Quarter: 2013Q2

REPORT INFORMATION
  Report Type: Spontaneous
  Country: IT (occurrence: FR)
  Receive Date: 20130226
  Receipt Date: 20130418
  Transmission Date: 20140414
  Serious: Yes (Hospitalization)
  Sender: FDA-Public Use
  Company Number: FR-FRI-1000042767

PATIENT
  Age: 74 Year
  Sex: Male
  Weight: 75 kg

DRUGS (9)
  1. NEBIVOLOL [Suspect]
     Indication: CARDIOMYOPATHY
     Dosage: 10 MG
     Route: 048
     Dates: start: 201107
  2. KARDEGIC [Concomitant]
  3. PRAVASTATINE [Concomitant]
  4. MONICOR [Concomitant]
     Route: 048
  5. ZYLORIC [Concomitant]
     Route: 048
  6. XANAX [Concomitant]
     Route: 048
  7. ALTEIS [Concomitant]
     Route: 048
  8. EUPANTOL [Concomitant]
  9. MODURETIC [Concomitant]
     Route: 048

REACTIONS (5)
  - Hepatocellular injury [Recovering/Resolving]
  - Jaundice cholestatic [Recovering/Resolving]
  - Weight decreased [Recovering/Resolving]
  - General physical health deterioration [Recovering/Resolving]
  - Hepatitis alcoholic [Recovering/Resolving]
